FAERS Safety Report 8560831-3 (Version None)
Quarter: 2012Q3

REPORT INFORMATION
  Report Type: 
  Country: None (occurrence: None)
  Receive Date: 20120802
  Receipt Date: 20110430
  Transmission Date: 20120928
  Serious: Yes (Hospitalization)
  Sender: FDA-Public Use
  Company Number: ZA-ROCHE-1094927

PATIENT
  Sex: Female

DRUGS (2)
  1. NEORECORMON [Suspect]
     Indication: PRODUCT USED FOR UNKNOWN INDICATION
     Route: 058
  2. PEGASYS [Suspect]
     Indication: HEPATITIS INFECTIOUS

REACTIONS (2)
  - HAEMOGLOBIN DECREASED [None]
  - HEPATITIS INFECTIOUS [None]
